FAERS Safety Report 5002453-7 (Version None)
Quarter: 2006Q2

REPORT INFORMATION
  Report Type: 
  Country: None (occurrence: None)
  Receive Date: 20060515
  Receipt Date: 20050811
  Transmission Date: 20061013
  Serious: Yes (Death, Hospitalization, Other)
  Sender: FDA-Public Use
  Company Number: US-MERCK-0508USA02102

PATIENT
  Age: 77 Year
  Sex: Female
  Weight: 64 kg

DRUGS (4)
  1. VIOXX [Suspect]
     Indication: OSTEOARTHRITIS
     Route: 048
     Dates: start: 20000701, end: 20011201
  2. VIOXX [Suspect]
     Route: 048
     Dates: start: 20021201, end: 20030301
  3. VIOXX [Suspect]
     Route: 048
     Dates: start: 20020301, end: 20020601
  4. ECOTRIN [Concomitant]
     Route: 065

REACTIONS (5)
  - ANXIETY [None]
  - ARRHYTHMIA [None]
  - CARDIAC FAILURE CONGESTIVE [None]
  - CEREBROVASCULAR ACCIDENT [None]
  - HYPERTENSION [None]
